FAERS Safety Report 16096280 (Version 1)
Quarter: 2019Q1

REPORT INFORMATION
  Report Type: Spontaneous
  Country: US (occurrence: US)
  Receive Date: 20190320
  Receipt Date: 20190320
  Transmission Date: 20190418
  Serious: Yes (Hospitalization, Other)
  Sender: FDA-Public Use
  Company Number: US-SA-2019SA071346

PATIENT
  Age: 54 Year
  Sex: Male

DRUGS (4)
  1. COUMADIN [Suspect]
     Active Substance: WARFARIN SODIUM
     Indication: COAGULOPATHY
     Dosage: UNK UNK, UNK
     Route: 065
  2. ENOXAPARIN SODIUM - WINTHROP [Suspect]
     Active Substance: ENOXAPARIN SODIUM
     Indication: THROMBOSIS
     Dosage: 150 MG, UNK
  3. ENOXAPARIN SODIUM - WINTHROP [Suspect]
     Active Substance: ENOXAPARIN SODIUM
     Indication: PULMONARY EMBOLISM
     Dosage: 150 MG, QD
     Route: 065
  4. COUMADIN [Suspect]
     Active Substance: WARFARIN SODIUM
     Dosage: UNK UNK, UNK

REACTIONS (6)
  - Thrombosis [Unknown]
  - Pulmonary embolism [Unknown]
  - Treatment failure [Unknown]
  - Exostosis [Unknown]
  - International normalised ratio fluctuation [Unknown]
  - Diarrhoea [Unknown]
